FAERS Safety Report 9059165 (Version 2)
Quarter: 2014Q1

REPORT INFORMATION
  Report Type: Spontaneous
  Country: US (occurrence: US)
  Receive Date: 20130211
  Receipt Date: 20140224
  Transmission Date: 20141002
  Serious: No
  Sender: FDA-Public Use
  Company Number: US-BRISTOL-MYERS SQUIBB COMPANY-17115205

PATIENT
  Age: 66 Year
  Sex: Female

DRUGS (24)
  1. METFORMIN HCL [Suspect]
     Indication: TYPE 2 DIABETES MELLITUS
     Dosage: 1 DF: 25UNITS
  2. INSULIN GLARGINE [Suspect]
     Indication: TYPE 2 DIABETES MELLITUS
     Dosage: 1 DF: 25UNITS
     Route: 058
  3. ALBUTEROL [Concomitant]
     Indication: DYSPNOEA
     Dosage: 2 PUFFS,AS NEEDED
     Route: 048
  4. ALBUTEROL [Concomitant]
     Indication: WHEEZING
     Dosage: 2 PUFFS,AS NEEDED
     Route: 048
  5. ALBUTEROL [Concomitant]
     Indication: COUGH
     Dosage: 2 PUFFS,AS NEEDED
     Route: 048
  6. ASPIRIN [Concomitant]
     Route: 048
  7. AZITHROMYCIN [Concomitant]
     Dosage: 2 TABS ON DAY 1
  8. CIPROFLOXACIN [Concomitant]
     Route: 048
  9. PREMARIN [Concomitant]
     Dosage: 1DF:0.625MG/GM
  10. VITAMIN B12 [Concomitant]
     Dosage: TABS
     Route: 048
  11. FISH OIL [Concomitant]
     Route: 048
  12. AMARYL [Concomitant]
     Route: 048
  13. LANTUS [Concomitant]
     Route: 058
  14. CLARITIN [Concomitant]
     Route: 048
  15. COZAAR [Concomitant]
     Route: 048
  16. GLUCOPHAGE [Concomitant]
     Route: 048
  17. GLUCOSAMINE+CHONDROITIN+MSM [Concomitant]
     Route: 048
  18. MULTIVITAMIN [Concomitant]
     Route: 048
  19. PRILOSEC [Concomitant]
     Route: 048
  20. PAXIL [Concomitant]
  21. DELTASONE [Concomitant]
     Route: 048
  22. ZANTAC [Concomitant]
     Route: 048
  23. ZOCOR [Concomitant]
     Route: 048
  24. VITAMIN E [Concomitant]
     Dosage: 1DF:400 UNITS
     Route: 048

REACTIONS (3)
  - Hyperglycaemia [Unknown]
  - Glycosylated haemoglobin increased [Unknown]
  - Malaise [Unknown]
